FAERS Safety Report 5146948-4 (Version None)
Quarter: 2006Q4

REPORT INFORMATION
  Report Type: 
  Country: None (occurrence: None)
  Receive Date: 20061109
  Receipt Date: 20061106
  Transmission Date: 20070319
  Serious: Yes (Life-Threatening)
  Sender: FDA-Public Use
  Company Number: FR-ELI_LILLY_AND_COMPANY-FR200611001074

PATIENT
  Age: 44 Year
  Sex: Male
  Weight: 62 kg

DRUGS (6)
  1. ZYPREXA [Suspect]
     Dosage: 10 MG, DAILY (1/D)
     Route: 048
     Dates: start: 20060524, end: 20060923
  2. ZYPREXA [Suspect]
     Dosage: 40 MG, DAILY (1/D)
     Route: 048
     Dates: end: 20060923
  3. AKINETON [Concomitant]
     Dosage: 1 D/F, DAILY (1/D)
     Route: 048
     Dates: start: 20060525, end: 20060923
  4. TEMESTA                                 /NET/ [Concomitant]
     Dosage: 1.5 MG, DAILY (1/D)
     Route: 048
     Dates: start: 20060629, end: 20060923
  5. ZOLPIDEM TARTRATE [Concomitant]
     Dosage: 10 MG, DAILY (1/D)
     Route: 048
     Dates: start: 20060101, end: 20060923
  6. LOXAPAC [Concomitant]
     Dosage: 120 MG, DAILY (1/D)
     Route: 048
     Dates: start: 20060526, end: 20060923

REACTIONS (2)
  - MYOCARDIAL INFARCTION [None]
  - PRESCRIBED OVERDOSE [None]
